FAERS Safety Report 20030390 (Version 1)
Quarter: 2021Q4

REPORT INFORMATION
  Report Type: Spontaneous
  Country: US (occurrence: None)
  Receive Date: 20211103
  Receipt Date: 20211103
  Transmission Date: 20220303
  Serious: No
  Sender: FDA-Public Use
  Company Number: 2021A759980

PATIENT
  Age: 734 Month
  Sex: Female
  Weight: 88 kg

DRUGS (4)
  1. BYDUREON BCISE [Suspect]
     Active Substance: EXENATIDE
     Indication: Type 2 diabetes mellitus
     Dosage: 2MG/ML ONCE A WEEK
     Route: 058
  2. BYDUREON [Suspect]
     Active Substance: EXENATIDE
     Indication: Type 2 diabetes mellitus
     Dosage: 2MG/ML
     Route: 058
  3. JAKAFI [Concomitant]
     Active Substance: RUXOLITINIB
     Indication: Polycythaemia
     Route: 048
  4. ACID REFLUX [Concomitant]
     Indication: Gastrooesophageal reflux disease
     Route: 065

REACTIONS (9)
  - COVID-19 [Unknown]
  - Colonoscopy [Unknown]
  - Polycythaemia [Unknown]
  - Injection site nodule [Unknown]
  - Injection site pruritus [Unknown]
  - Nausea [Unknown]
  - Constipation [Unknown]
  - Weight decreased [Unknown]
  - Device breakage [Unknown]

NARRATIVE: CASE EVENT DATE: 20210501
